FAERS Safety Report 8558462-4 (Version None)
Quarter: 2012Q3

REPORT INFORMATION
  Report Type: 
  Country: None (occurrence: None)
  Receive Date: 20120801
  Receipt Date: 20120427
  Transmission Date: 20120928
  Serious: Yes (Hospitalization)
  Sender: FDA-Public Use
  Company Number: JP-009507513-1207JPN007454

PATIENT

DRUGS (5)
  1. TELAVIC [Suspect]
     Indication: HEPATITIS C
     Route: 048
     Dates: start: 20120316, end: 20120414
  2. REBETOL [Suspect]
     Route: 048
     Dates: start: 20120329, end: 20120401
  3. REBETOL [Suspect]
     Route: 048
     Dates: start: 20120402, end: 20120419
  4. PEG-INTRON [Suspect]
     Indication: HEPATITIS C
     Dosage: 1.5MCG/KG/WEEK
     Route: 058
     Dates: start: 20120316, end: 20120419
  5. REBETOL [Suspect]
     Indication: HEPATITIS C
     Route: 048
     Dates: start: 20120316, end: 20120328

REACTIONS (2)
  - BLOOD CREATININE INCREASED [None]
  - DRUG ERUPTION [None]
